FAERS Safety Report 12735329 (Version 1)
Quarter: 2016Q3

REPORT INFORMATION
  Report Type: Report from Study
  Country: US (occurrence: US)
  Receive Date: 20160913
  Receipt Date: 20160913
  Transmission Date: 20161109
  Serious: Yes (Other)
  Sender: FDA-Public Use
  Company Number: US-TEVA-692096USA

PATIENT
  Age: 38 Year
  Sex: Female

DRUGS (1)
  1. COPAXONE [Suspect]
     Active Substance: GLATIRAMER ACETATE
     Dosage: UNKNOWN FORM STRENGTH
     Dates: start: 201605

REACTIONS (8)
  - Drug hypersensitivity [Unknown]
  - Blood glucose decreased [Unknown]
  - Tonic posturing [Unknown]
  - Tongue biting [Unknown]
  - Hypokinesia [Unknown]
  - Grunting [Unknown]
  - Fall [Unknown]
  - Musculoskeletal stiffness [Unknown]

NARRATIVE: CASE EVENT DATE: 201605
